FAERS Safety Report 9199738 (Version 2)
Quarter: 2013Q2

REPORT INFORMATION
  Report Type: Spontaneous
  Country: US (occurrence: None)
  Receive Date: 20130326
  Receipt Date: 20130410
  Transmission Date: 20140414
  Serious: Yes (Other)
  Sender: FDA-Public Use
  Company Number: JPI-P-030583

PATIENT
  Age: 51 Year
  Sex: Female
  Weight: 103.87 kg

DRUGS (10)
  1. XYREM (500 MILLIGRAM/MILLILITERS, SOLUTION)(SODIUM OXYBATE) [Suspect]
     Indication: NARCOLEPSY
     Route: 048
     Dates: start: 201111
  2. TOPIRAMATE [Concomitant]
  3. DEXTROAMPHETAMINE/AMPHETAMINE [Concomitant]
  4. HYDROCODONE BITARTRATE AND ACETAMINOPHEN [Concomitant]
  5. ESCITALOPRAM OXALATE [Concomitant]
  6. LISINOPRIL [Concomitant]
  7. PANTOPRAZOLE [Concomitant]
  8. ATORVASTATIN [Concomitant]
  9. OMEGA-3 ACID ETHYL ESTERS [Concomitant]
  10. BUTALBITAL, ACETAMINOPHEN AND CAFFEINE [Concomitant]

REACTIONS (2)
  - Pneumonia [None]
  - Sinusitis [None]
